FAERS Safety Report 4320914-0 (Version None)
Quarter: 2004Q1

REPORT INFORMATION
  Report Type: 
  Country: None (occurrence: None)
  Receive Date: 20040322
  Receipt Date: 20040310
  Transmission Date: 20041129
  Serious: Yes (Hospitalization)
  Sender: FDA-Public Use
  Company Number: FR-BRISTOL-MYERS SQUIBB COMPANY-12529699

PATIENT
  Age: 41 Year
  Sex: Male
  Weight: 47 kg

DRUGS (3)
  1. VIDEX [Suspect]
     Indication: HIV INFECTION
     Route: 048
     Dates: start: 20020101
  2. KALETRA [Suspect]
     Indication: HIV INFECTION
     Dates: start: 20020101
  3. VIREAD [Suspect]
     Indication: HIV INFECTION
     Dates: start: 20020101

REACTIONS (5)
  - BLOOD CREATININE INCREASED [None]
  - BLOOD POTASSIUM DECREASED [None]
  - HEPATITIS [None]
  - LACTIC ACIDOSIS [None]
  - RENAL DISORDER [None]
